FAERS Safety Report 6456911-9 (Version None)
Quarter: 2009Q4

REPORT INFORMATION
  Report Type: 
  Country: None (occurrence: None)
  Receive Date: 20091120
  Receipt Date: 20091105
  Transmission Date: 20100525
  Serious: Yes (Other)
  Sender: FDA-Public Use
  Company Number: 2009BM000300

PATIENT
  Sex: Male

DRUGS (1)
  1. KUVAN [Suspect]
     Indication: PHENYLKETONURIA

REACTIONS (6)
  - AIRWAY COMPLICATION OF ANAESTHESIA [None]
  - HIATUS HERNIA [None]
  - INFLAMMATION [None]
  - OESOPHAGEAL DISORDER [None]
  - OESOPHAGEAL HAEMORRHAGE [None]
  - OXYGEN SATURATION DECREASED [None]
